FAERS Safety Report 18314828 (Version 1)
Quarter: 2020Q3

REPORT INFORMATION
  Report Type: Spontaneous
  Country: US (occurrence: US)
  Receive Date: 20200925
  Receipt Date: 20200925
  Transmission Date: 20201103
  Serious: No
  Sender: FDA-Public Use
  Company Number: US-009507513-2009USA008762

PATIENT
  Age: 15 Year
  Sex: Female
  Weight: 50.34 kg

DRUGS (1)
  1. NEXPLANON [Suspect]
     Active Substance: ETONOGESTREL
     Indication: MENORRHAGIA
     Dosage: 1 ROD EVERY 3 YEARS, IN LEFT ARM
     Route: 059
     Dates: start: 20190730

REACTIONS (3)
  - Neoplasm [Not Recovered/Not Resolved]
  - Product use in unapproved indication [Unknown]
  - Muscle disorder [Not Recovered/Not Resolved]

NARRATIVE: CASE EVENT DATE: 20190730
